FAERS Safety Report 25031043 (Version 1)
Quarter: 2025Q1

REPORT INFORMATION
  Report Type: Spontaneous
  Country: US (occurrence: US)
  Receive Date: 20250303
  Receipt Date: 20250303
  Transmission Date: 20250409
  Serious: No
  Sender: DAIICHI
  Company Number: US-AstraZeneca-CH-00816222A

PATIENT
  Sex: Female

DRUGS (1)
  1. ENHERTU [Suspect]
     Active Substance: FAM-TRASTUZUMAB DERUXTECAN-NXKI
     Indication: Ovarian cancer metastatic
     Route: 065

REACTIONS (2)
  - Dizziness [Not Recovered/Not Resolved]
  - Vertigo [Unknown]
